FAERS Safety Report 24615857 (Version 1)
Quarter: 2024Q4

REPORT INFORMATION
  Report Type: Spontaneous
  Country: CA (occurrence: CA)
  Receive Date: 20241113
  Receipt Date: 20241113
  Transmission Date: 20250114
  Serious: Yes (Other)
  Sender: SANDOZ
  Company Number: CA-SANDOZ-SDZ2024CA095002

PATIENT

DRUGS (2)
  1. VORICONAZOLE [Suspect]
     Active Substance: VORICONAZOLE
     Indication: Antifungal prophylaxis
     Dosage: 250 MG, Q12H, 1 EVERY .5 DAYS
     Route: 065
  2. VENETOCLAX [Suspect]
     Active Substance: VENETOCLAX
     Indication: Acute myeloid leukaemia
     Dosage: UNK
     Route: 065

REACTIONS (3)
  - Bronchopulmonary aspergillosis [Unknown]
  - Drug interaction [Unknown]
  - Therapeutic product ineffective [Unknown]
